FAERS Safety Report 4884597-3 (Version None)
Quarter: 2006Q1

REPORT INFORMATION
  Report Type: 
  Country: None (occurrence: None)
  Receive Date: 20060119
  Receipt Date: 20060109
  Transmission Date: 20060701
  Serious: Yes (Death)
  Sender: FDA-Public Use
  Company Number: KR-AVENTIS-200610251GDDC

PATIENT
  Sex: Female

DRUGS (3)
  1. TAXOTERE [Suspect]
     Indication: METASTATIC GASTRIC CANCER
     Route: 042
  2. DEXAMETASON [Concomitant]
     Indication: HYPERSENSITIVITY
     Route: 048
  3. DEXAMETASON [Concomitant]
     Indication: PROPHYLAXIS
     Route: 048

REACTIONS (1)
  - PNEUMONIA ASPIRATION [None]
